FAERS Safety Report 5431443-5 (Version None)
Quarter: 2007Q3

REPORT INFORMATION
  Report Type: 
  Country: None (occurrence: None)
  Receive Date: 20070830
  Receipt Date: 20070618
  Transmission Date: 20080115
  Serious: No
  Sender: FDA-Public Use
  Company Number: A0657222A

PATIENT
  Age: 59 Year
  Sex: Male

DRUGS (2)
  1. WELLBUTRIN XL [Suspect]
     Indication: DEPRESSION
     Dosage: 300MG PER DAY
     Route: 048
     Dates: start: 20070501
  2. DALMANE [Concomitant]

REACTIONS (3)
  - CRYING [None]
  - DEPRESSION [None]
  - INSOMNIA [None]
